FAERS Safety Report 8583582-8 (Version None)
Quarter: 2012Q3

REPORT INFORMATION
  Report Type: 
  Country: None (occurrence: None)
  Receive Date: 20120809
  Receipt Date: 20120801
  Transmission Date: 20120928
  Serious: Yes (Death)
  Sender: FDA-Public Use
  Company Number: CA-UCBSA-063054

PATIENT
  Sex: Female

DRUGS (2)
  1. LEFLUNOMIDE [Concomitant]
     Indication: RHEUMATOID ARTHRITIS
     Dates: start: 20091201, end: 20120709
  2. CIMZIA [Suspect]
     Indication: RHEUMATOID ARTHRITIS
     Dosage: 12 DOSES RECEIVED
     Route: 058
     Dates: start: 20111129, end: 20120522

REACTIONS (1)
  - LUNG NEOPLASM MALIGNANT [None]
